FAERS Safety Report 5613476-9 (Version None)
Quarter: 2008Q1

REPORT INFORMATION
  Report Type: 
  Country: None (occurrence: None)
  Receive Date: 20080205
  Receipt Date: 20080107
  Transmission Date: 20080703
  Serious: No
  Sender: FDA-Public Use
  Company Number: US-BAYER-200810710NA

PATIENT
  Age: 43 Year
  Sex: Female
  Weight: 49 kg

DRUGS (2)
  1. MIRENA [Suspect]
     Indication: CONTRACEPTION
     Route: 015
     Dates: start: 20071211
  2. SYNTHROID [Concomitant]

REACTIONS (2)
  - BACK PAIN [None]
  - PROCEDURAL PAIN [None]
